FAERS Safety Report 20887251 (Version 1)
Quarter: 2022Q2

REPORT INFORMATION
  Report Type: Spontaneous
  Country: PL (occurrence: PL)
  Receive Date: 20220528
  Receipt Date: 20220528
  Transmission Date: 20220721
  Serious: Yes (Hospitalization, Other)
  Sender: FDA-Public Use
  Company Number: PL-AMGEN-POLSP2022091139

PATIENT
  Age: 46 Year
  Sex: Female

DRUGS (1)
  1. VECTIBIX [Suspect]
     Active Substance: PANITUMUMAB
     Indication: Rectal cancer
     Dosage: UNK, HAD 75 COURSES
     Route: 065
     Dates: start: 20160311, end: 20190612

REACTIONS (11)
  - Myocardial infarction [Unknown]
  - Ventricular extrasystoles [Unknown]
  - Acute kidney injury [Unknown]
  - Skin toxicity [Recovering/Resolving]
  - Fibrosis [Unknown]
  - Madarosis [Unknown]
  - Haemoglobin decreased [Unknown]
  - Therapy partial responder [Unknown]
  - Nasal dryness [Unknown]
  - Blood magnesium decreased [Unknown]
  - Dry eye [Unknown]

NARRATIVE: CASE EVENT DATE: 20190510
